FAERS Safety Report 16055872 (Version 4)
Quarter: 2019Q4

REPORT INFORMATION
  Report Type: Report from Study
  Country: None (occurrence: US)
  Receive Date: 20190311
  Receipt Date: 20191011
  Transmission Date: 20200122
  Serious: Yes (Other)
  Sender: FDA-Public Use
  Company Number: US-ABBVIE-19K-163-2693098-00

PATIENT
  Sex: Male
  Weight: 86.26 kg

DRUGS (3)
  1. CANASA [Concomitant]
     Active Substance: MESALAMINE
     Indication: PRODUCT USED FOR UNKNOWN INDICATION
  2. HUMIRA [Suspect]
     Active Substance: ADALIMUMAB
     Route: 058
     Dates: start: 201901
  3. HUMIRA [Suspect]
     Active Substance: ADALIMUMAB
     Indication: COLITIS ULCERATIVE
     Route: 058
     Dates: start: 201805, end: 2018

REACTIONS (11)
  - Drug ineffective [Recovered/Resolved]
  - Incision site complication [Unknown]
  - Haematochezia [Recovered/Resolved]
  - Incision site pain [Unknown]
  - Back pain [Not Recovered/Not Resolved]
  - Colostomy closure [Recovered/Resolved]
  - Acne [Not Recovered/Not Resolved]
  - Blister [Not Recovered/Not Resolved]
  - Incision site inflammation [Not Recovered/Not Resolved]
  - Fear [Unknown]
  - Herpes zoster [Unknown]

NARRATIVE: CASE EVENT DATE: 2018
